FAERS Safety Report 9397719 (Version 1)
Quarter: 2013Q3

REPORT INFORMATION
  Report Type: Report from Study
  Country: FR (occurrence: FR)
  Receive Date: 20130712
  Receipt Date: 20130712
  Transmission Date: 20140515
  Serious: Yes (Death, Hospitalization)
  Sender: FDA-Public Use
  Company Number: FR-ASTELLAS-2013EU005288

PATIENT
  Age: 78 Year
  Sex: Male
  Weight: 75 kg

DRUGS (6)
  1. ENZALUTAMIDE [Suspect]
     Indication: PROSTATE CANCER
     Dosage: 160 MG, UNKNOWN/D
     Route: 048
     Dates: start: 20130415
  2. FLECAINE [Concomitant]
     Indication: ARRHYTHMIA
     Dosage: 100 MG, UNKNOWN/D
     Route: 048
     Dates: start: 20120104
  3. INEXIUM                            /01479302/ [Concomitant]
     Indication: OESOPHAGITIS
     Dosage: 40 MG, UNKNOWN/D
     Route: 048
     Dates: start: 201203
  4. INNOHEP [Concomitant]
     Indication: THROMBOSIS
     Dosage: 0.5 ML, UNKNOWN/D
     Route: 058
     Dates: start: 20130425
  5. ALLOPURINOL [Concomitant]
     Indication: GOUT
     Dosage: 100 MG, UNKNOWN/D
     Route: 048
     Dates: start: 2000
  6. COVERSYL                           /00790702/ [Concomitant]
     Indication: HYPERTENSION
     Dosage: 5 MG, BID
     Route: 048
     Dates: start: 1995

REACTIONS (4)
  - Death [Fatal]
  - Muscular weakness [Recovering/Resolving]
  - Subdural haematoma [Recovering/Resolving]
  - Eructation [Recovering/Resolving]
